FAERS Safety Report 8911383 (Version 1)
Quarter: 2012Q4

REPORT INFORMATION
  Report Type: 
  Country: US (occurrence: US)
  Receive Date: 20121116
  Receipt Date: 20121116
  Transmission Date: 20130627
  Serious: No
  Sender: FDA-Public Use
  Company Number: US-GLENMARK GENERICS INC.-2012GMK003282

PATIENT
  Sex: Female

DRUGS (1)
  1. NORGESTIMATE + EE [Suspect]
     Indication: CONTRACEPTION
     Dosage: UNK
     Route: 048

REACTIONS (4)
  - Pregnancy [Unknown]
  - Drug ineffective [Unknown]
  - Product packaging issue [Unknown]
  - Exposure during pregnancy [None]
